FAERS Safety Report 6801462-2 (Version None)
Quarter: 2010Q2

REPORT INFORMATION
  Report Type: 
  Country: None (occurrence: None)
  Receive Date: 20100629
  Receipt Date: 20100624
  Transmission Date: 20101027
  Serious: Yes (Death)
  Sender: FDA-Public Use
  Company Number: CA-ROCHE-704259

PATIENT
  Sex: Female
  Weight: 60.7 kg

DRUGS (12)
  1. BEVACIZUMAB [Suspect]
     Dosage: DOSAGE FORM: LIQUID.
     Route: 042
     Dates: start: 20100309, end: 20100420
  2. CAPECITABINE [Suspect]
     Indication: COLORECTAL CANCER METASTATIC
     Dosage: TEMPORARILY INTERRUPTED, FREQUENCY: BID X10 DAYS EVERY 3 WEEKS.
     Route: 048
     Dates: start: 20100309
  3. LASIX [Concomitant]
     Dates: start: 20100304
  4. LEVOFLOXACIN [Concomitant]
     Dosage: END DATE REPORTED: 11 MARCH 2010.
     Dates: start: 20100504
  5. SALBUTAMOL [Concomitant]
     Dosage: DRUG NAME: SALBUTAMOL PUFFER, TOTAL DAILY DOSE: AS NEEDED (PRN).
     Dates: start: 20100415
  6. AMLODIPINE [Concomitant]
     Dates: start: 20100316
  7. ALTACE [Concomitant]
     Dates: start: 20081113
  8. DIVARIUS [Concomitant]
     Dosage: DRUG NAME: DIVARS.
     Dates: start: 20090501
  9. PREVACID [Concomitant]
     Dates: start: 20090501
  10. MICRO-K [Concomitant]
     Dates: start: 20090501
  11. CALTRATE [Concomitant]
     Dates: start: 19990601
  12. MEGA-CAL [Concomitant]
     Dosage: MEGA CAL WITH VITAMIN D.
     Dates: start: 19990601

REACTIONS (4)
  - AORTIC VALVE SCLEROSIS [None]
  - PULMONARY EMBOLISM [None]
  - PULMONARY HYPERTENSION [None]
  - TRICUSPID VALVE INCOMPETENCE [None]
